FAERS Safety Report 5766771-7 (Version None)
Quarter: 2008Q2

REPORT INFORMATION
  Report Type: 
  Country: None (occurrence: None)
  Receive Date: 20080612
  Receipt Date: 20080610
  Transmission Date: 20081010
  Serious: Yes (Hospitalization)
  Sender: FDA-Public Use
  Company Number: GB-ROCHE-553832

PATIENT
  Sex: Female
  Weight: 79.8 kg

DRUGS (4)
  1. ORLISTAT [Suspect]
     Indication: OBESITY
     Route: 048
     Dates: start: 20071006
  2. DICLOFENAC [Concomitant]
  3. CO-DYDRAMOL [Concomitant]
  4. CO-DYDRAMOL [Concomitant]

REACTIONS (1)
  - CHOLECYSTECTOMY [None]
